FAERS Safety Report 5711308-1 (Version None)
Quarter: 2008Q2

REPORT INFORMATION
  Report Type: 
  Country: None (occurrence: None)
  Receive Date: 20080421
  Receipt Date: 20080409
  Transmission Date: 20081010
  Serious: Yes (Hospitalization, Other)
  Sender: FDA-Public Use
  Company Number: PHHY2008TR04652

PATIENT
  Age: 11 Year
  Sex: Male
  Weight: 33.4 kg

DRUGS (7)
  1. SANDIMMUNE [Suspect]
     Indication: RENAL TRANSPLANT
     Dosage: 150 MG/DAY
     Route: 048
     Dates: start: 20071113, end: 20071213
  2. SANDIMMUNE [Suspect]
     Dosage: 150 MG/DAY
     Route: 048
     Dates: start: 20071213, end: 20071228
  3. ASIVIRAL [Concomitant]
     Dosage: 400 MG, BID
  4. NISTATIN [Concomitant]
     Dosage: 4X1
     Route: 048
  5. PREDNISOLONE [Concomitant]
     Dosage: 20 MG/DAY
  6. MYFORTIC [Concomitant]
     Dosage: 540 MG, BID
  7. BACTRIM [Concomitant]
     Dosage: 1 TAB
     Route: 048

REACTIONS (6)
  - BLOOD CREATININE INCREASED [None]
  - BLOOD UREA INCREASED [None]
  - CAPILLARY LEAK SYNDROME [None]
  - HAEMOGLOBIN DECREASED [None]
  - KIDNEY TRANSPLANT REJECTION [None]
  - RESPIRATORY DISTRESS [None]
